FAERS Safety Report 5118266-1 (Version None)
Quarter: 2006Q4

REPORT INFORMATION
  Report Type: 
  Country: None (occurrence: None)
  Receive Date: 20061002
  Receipt Date: 20060727
  Transmission Date: 20070319
  Serious: No
  Sender: FDA-Public Use
  Company Number: US-BRISTOL-MYERS SQUIBB COMPANY-13458138

PATIENT
  Age: 30 Year
  Sex: Female

DRUGS (2)
  1. ORENCIA [Suspect]
     Indication: RHEUMATOID ARTHRITIS
     Route: 042
     Dates: start: 20060712
  2. ZYRTEC [Concomitant]
     Indication: RHEUMATOID ARTHRITIS

REACTIONS (3)
  - ERYTHEMA [None]
  - PHARYNGOLARYNGEAL PAIN [None]
  - URTICARIA [None]
